FAERS Safety Report 9668365 (Version 1)
Quarter: 2013Q4

REPORT INFORMATION
  Report Type: Report from Study
  Country: US (occurrence: US)
  Receive Date: 20131104
  Receipt Date: 20131104
  Transmission Date: 20140711
  Serious: Yes (Hospitalization, Other)
  Sender: FDA-Public Use
  Company Number: US-ABBVIE-13P-163-1163079-00

PATIENT
  Age: 70 Year
  Sex: Male

DRUGS (9)
  1. HUMIRA [Suspect]
     Indication: RHEUMATOID ARTHRITIS
     Dates: start: 2012, end: 201301
  2. LYRICA [Concomitant]
     Indication: PRODUCT USED FOR UNKNOWN INDICATION
  3. MORPHINE [Concomitant]
     Indication: PAIN
     Dosage: ER
  4. MORPHINE [Concomitant]
     Dosage: INSTANT RELEASE
  5. NABUMETONE [Concomitant]
     Indication: RHEUMATOID ARTHRITIS
     Dates: start: 20130829
  6. METOPROLOL [Concomitant]
     Indication: HYPERTENSION
     Dates: start: 20121107
  7. METOPROLOL [Concomitant]
  8. IBANDRONATE SODIUM [Concomitant]
     Indication: BONE DISORDER
     Dates: start: 20131007
  9. IBANDRONATE SODIUM [Concomitant]
     Indication: STEROID THERAPY

REACTIONS (16)
  - Brain injury [Unknown]
  - Balance disorder [Unknown]
  - Fall [Unknown]
  - Excoriation [Unknown]
  - Hypersomnia [Unknown]
  - Amnesia [Unknown]
  - Confusional state [Unknown]
  - Rheumatoid arthritis [Unknown]
  - Rheumatoid arthritis [Unknown]
  - Asthenia [Unknown]
  - Dizziness [Unknown]
  - Depression [Unknown]
  - Rheumatoid arthritis [Unknown]
  - Rheumatoid arthritis [Unknown]
  - Rheumatoid arthritis [Unknown]
  - Drug ineffective [Unknown]
